FAERS Safety Report 7245574-0 (Version None)
Quarter: 2011Q1

REPORT INFORMATION
  Report Type: 
  Country: None (occurrence: None)
  Receive Date: 20110126
  Receipt Date: 20110119
  Transmission Date: 20110831
  Serious: Yes (Other)
  Sender: FDA-Public Use
  Company Number: US-AMGEN-USASP2011003444

PATIENT
  Age: 57 Year
  Sex: Female

DRUGS (1)
  1. ENBREL [Suspect]
     Indication: ANKYLOSING SPONDYLITIS
     Dates: start: 20100222

REACTIONS (8)
  - FIBULA FRACTURE [None]
  - OSTEOPOROSIS [None]
  - PAIN [None]
  - FATIGUE [None]
  - DECREASED APPETITE [None]
  - WEIGHT DECREASED [None]
  - BREAST MASS [None]
  - DEPRESSION [None]
